FAERS Safety Report 4743544-5 (Version None)
Quarter: 2005Q3

REPORT INFORMATION
  Report Type: 
  Country: None (occurrence: None)
  Receive Date: 20050812
  Receipt Date: 20050803
  Transmission Date: 20060218
  Serious: Yes (Other)
  Sender: FDA-Public Use
  Company Number: US-JNJFOC-20050404297

PATIENT
  Sex: Female
  Weight: 86.18 kg

DRUGS (7)
  1. REMICADE [Suspect]
     Route: 042
  2. REMICADE [Suspect]
     Indication: CROHN'S DISEASE
     Route: 042
  3. PURINETHOL [Concomitant]
     Route: 048
  4. PENTASA [Concomitant]
     Route: 048
  5. WELLBUTRIN [Concomitant]
  6. LIBRAX [Concomitant]
  7. LIBRAX [Concomitant]

REACTIONS (3)
  - FUNGUS SEROLOGY TEST POSITIVE [None]
  - GASTROOESOPHAGEAL REFLUX DISEASE [None]
  - SINUSITIS [None]
